FAERS Safety Report 10168723 (Version 1)
Quarter: 2014Q2

REPORT INFORMATION
  Report Type: Spontaneous
  Country: US (occurrence: None)
  Receive Date: 20140512
  Receipt Date: 20140512
  Transmission Date: 20141212
  Serious: Yes (Other)
  Sender: FDA-Public Use
  Company Number: None

PATIENT
  Age: 61 Year
  Sex: Male
  Weight: 81.65 kg

DRUGS (4)
  1. NORCO [Suspect]
     Indication: MIGRAINE
     Dosage: 1 OR 2 FOUR TIMES DAILY TAKEN BY MOUTH
     Route: 048
  2. NORCO [Suspect]
     Indication: BACK PAIN
     Dosage: 1 OR 2 FOUR TIMES DAILY TAKEN BY MOUTH
     Route: 048
  3. NORCO [Suspect]
     Indication: PAIN
     Dosage: 1 OR 2 FOUR TIMES DAILY TAKEN BY MOUTH
     Route: 048
  4. NORCO [Suspect]
     Dosage: 1 OR 2 FOUR TIMES DAILY TAKEN BY MOUTH
     Route: 048

REACTIONS (4)
  - Poor quality drug administered [None]
  - Product odour abnormal [None]
  - Drug effect decreased [None]
  - Product substitution issue [None]
